FAERS Safety Report 9624807 (Version 2)
Quarter: 2013Q4

REPORT INFORMATION
  Report Type: Report from Study
  Country: BE (occurrence: BE)
  Receive Date: 20131015
  Receipt Date: 20131015
  Transmission Date: 20140711
  Serious: Yes (Other)
  Sender: FDA-Public Use
  Company Number: BE-GILEAD-2013-0083890

PATIENT
  Age: 37 Year
  Sex: Female

DRUGS (4)
  1. EMTRICITABINE/TENOFOVIR DISOPROXIL FUMARATE [Suspect]
     Indication: HIV INFECTION
     Dosage: 1 DF, QD
     Dates: start: 20110317
  2. RITONAVIR [Suspect]
     Indication: HIV INFECTION
     Dosage: 100 MG, UNK
     Dates: start: 20110317
  3. DARUNAVIR [Suspect]
     Indication: HIV INFECTION
     Dosage: 400 MG, BID
     Dates: start: 20110317
  4. CYTOTEC [Concomitant]
     Indication: ABORTION SPONTANEOUS
     Dosage: 0.2 MG, BID
     Dates: start: 20130917, end: 20130918

REACTIONS (1)
  - Abortion spontaneous [Recovered/Resolved]
